FAERS Safety Report 6510474-8 (Version None)
Quarter: 2009Q4

REPORT INFORMATION
  Report Type: 
  Country: None (occurrence: None)
  Receive Date: 20091221
  Receipt Date: 20091221
  Transmission Date: 20100525
  Serious: Yes (Death, Life-Threatening)
  Sender: FDA-Public Use
  Company Number: None

PATIENT
  Age: 85 Year
  Sex: Male
  Weight: 70 kg

DRUGS (9)
  1. MEGACE [Suspect]
     Indication: DECREASED APPETITE
     Dosage: 800 MG ONCE DAILY PO
     Route: 048
     Dates: start: 20090421, end: 20090421
  2. MEGACE [Suspect]
     Indication: WEIGHT CONTROL
     Dosage: 800 MG ONCE DAILY PO
     Route: 048
     Dates: start: 20090421, end: 20090421
  3. ADVIL [Concomitant]
  4. ATIVAN [Concomitant]
  5. LOTENSIN [Concomitant]
  6. AMOXICILLIN [Concomitant]
  7. FLOMAX [Concomitant]
  8. VICODIN [Concomitant]
  9. AVODART [Concomitant]

REACTIONS (9)
  - ADRENAL NEOPLASM [None]
  - CARDIOMEGALY [None]
  - CHOKING [None]
  - DRUG HYPERSENSITIVITY [None]
  - EPIGLOTTIC OEDEMA [None]
  - LOSS OF CONSCIOUSNESS [None]
  - PHARYNGEAL MASS [None]
  - UNRESPONSIVE TO STIMULI [None]
  - WHEEZING [None]
